FAERS Safety Report 23104817 (Version 1)
Quarter: 2023Q4

REPORT INFORMATION
  Report Type: Spontaneous
  Country: US (occurrence: US)
  Receive Date: 20231025
  Receipt Date: 20231025
  Transmission Date: 20240110
  Serious: Yes (Hospitalization)
  Sender: FDA-Public Use
  Company Number: US-AMNEAL PHARMACEUTICALS-2023-AMRX-03678

PATIENT
  Age: 48 Year
  Sex: Female
  Weight: 115.65 kg

DRUGS (8)
  1. ACTIVELLA [Suspect]
     Active Substance: ESTRADIOL\NORETHINDRONE ACETATE
     Indication: Uterine leiomyoma
     Dosage: EVERY 1 DAY
     Route: 048
     Dates: start: 20190819, end: 20200720
  2. ACTIVELLA [Suspect]
     Active Substance: ESTRADIOL\NORETHINDRONE ACETATE
     Dosage: EVERY 1 DAY
     Route: 048
     Dates: start: 20200722
  3. ELAGOLIX [Suspect]
     Active Substance: ELAGOLIX
     Indication: Uterine leiomyoma
     Dosage: 300 MG
     Route: 048
     Dates: start: 20190819, end: 20200720
  4. ELAGOLIX [Suspect]
     Active Substance: ELAGOLIX
     Dosage: 300 MG
     Route: 048
     Dates: start: 20200722
  5. OMEPRAZOLE [Concomitant]
     Active Substance: OMEPRAZOLE
     Indication: Gastrooesophageal reflux disease
     Dosage: 20 MG EVERY 1 DAY
     Route: 065
     Dates: start: 201207
  6. TYLENOL [Concomitant]
     Active Substance: ACETAMINOPHEN
     Indication: Migraine
     Dosage: 1000 MG, AS NECESSARY
     Route: 065
     Dates: start: 2014
  7. TYLENOL [Concomitant]
     Active Substance: ACETAMINOPHEN
     Indication: Dysmenorrhoea
  8. CHOLECALCIFEROL [Concomitant]
     Active Substance: CHOLECALCIFEROL
     Indication: Vitamin D decreased
     Dosage: 50000 IU 1X PER WEEK
     Route: 065
     Dates: start: 20190531

REACTIONS (1)
  - Thyroid mass [Recovered/Resolved]

NARRATIVE: CASE EVENT DATE: 20200721
